FAERS Safety Report 6526512-2 (Version None)
Quarter: 2010Q1

REPORT INFORMATION
  Report Type: 
  Country: None (occurrence: None)
  Receive Date: 20100105
  Receipt Date: 20091225
  Transmission Date: 20100710
  Serious: Yes (Other)
  Sender: FDA-Public Use
  Company Number: JP-BRISTOL-MYERS SQUIBB COMPANY-14915359

PATIENT
  Age: 27 Year
  Sex: Male

DRUGS (5)
  1. VEPESID [Suspect]
     Indication: ACUTE LYMPHOCYTIC LEUKAEMIA
     Route: 042
  2. CYCLOPHOSPHAMIDE [Suspect]
     Indication: ACUTE LYMPHOCYTIC LEUKAEMIA
  3. CYCLOSPORINE [Suspect]
     Indication: PROPHYLAXIS
  4. METHOTREXATE [Suspect]
     Indication: PROPHYLAXIS
  5. RADIOTHERAPY [Suspect]
     Indication: ACUTE LYMPHOCYTIC LEUKAEMIA

REACTIONS (6)
  - CHRONIC GRAFT VERSUS HOST DISEASE [None]
  - CYTOMEGALOVIRUS INFECTION [None]
  - LEUKOPLAKIA ORAL [None]
  - OESOPHAGEAL SQUAMOUS CELL CARCINOMA [None]
  - PNEUMOCYSTIS JIROVECI PNEUMONIA [None]
  - SCLERODERMA [None]
